FAERS Safety Report 5731216-X (Version None)
Quarter: 2008Q2

REPORT INFORMATION
  Report Type: 
  Country: None (occurrence: None)
  Receive Date: 20080507
  Receipt Date: 20080505
  Transmission Date: 20081010
  Serious: No
  Sender: FDA-Public Use
  Company Number: US-BOEHRINGER INGELHEIM GMBH, GERMANY-2008-BP-07029BP

PATIENT
  Sex: Female

DRUGS (10)
  1. MIRAPEX [Suspect]
     Indication: RESTLESS LEGS SYNDROME
     Dates: start: 20071001
  2. NORVASC [Concomitant]
  3. NORVASC [Concomitant]
  4. UNITHYROID [Concomitant]
  5. DIOVAN [Concomitant]
  6. WARFARIN SODIUM [Concomitant]
  7. LIPITOR [Concomitant]
  8. KLOR-CON [Concomitant]
  9. ACTONEL [Concomitant]
  10. METOPROLOL TARTRATE [Concomitant]

REACTIONS (2)
  - DYSGEUSIA [None]
  - POOR QUALITY SLEEP [None]
